FAERS Safety Report 13269467 (Version 1)
Quarter: 2017Q1

REPORT INFORMATION
  Report Type: Spontaneous
  Country: US (occurrence: US)
  Receive Date: 20170224
  Receipt Date: 20170224
  Transmission Date: 20170428
  Serious: Yes (Other)
  Sender: FDA-Public Use
  Company Number: US-LPDUSPRD-20170201

PATIENT
  Age: 63 Year
  Sex: Female
  Weight: 75 kg

DRUGS (7)
  1. NO DRUG NAME [Concomitant]
  2. CISATRACURIUM. [Concomitant]
     Active Substance: CISATRACURIUM
     Dosage: DOSE UNKNOWN
     Route: 042
  3. FENTANYL. [Concomitant]
     Active Substance: FENTANYL
     Dosage: DOSE UNKNOWN
     Route: 042
  4. PROPOFOL. [Concomitant]
     Active Substance: PROPOFOL
     Dosage: DOSE UNKNOWN
     Route: 042
  5. NOREPINEPHERINE [Concomitant]
     Active Substance: NOREPINEPHRINE\NOREPINEPHRINE BITARTRATE
     Dosage: 0.2 UG/KG/MIN
     Route: 042
  6. VASOPRESSIN INJECTION, USP (0510-25) [Suspect]
     Active Substance: VASOPRESSIN
     Dosage: 10 UNITS
     Route: 065
  7. ISOFLURANE. [Concomitant]
     Active Substance: ISOFLURANE
     Dosage: 0.5%
     Route: 042

REACTIONS (1)
  - Vasospasm [Unknown]
